FAERS Safety Report 8902561 (Version 4)
Quarter: 2013Q1

REPORT INFORMATION
  Report Type: Report from Study
  Country: CH (occurrence: CH)
  Receive Date: 20121112
  Receipt Date: 20130311
  Transmission Date: 20140127
  Serious: Yes (Hospitalization)
  Sender: FDA-Public Use
  Company Number: CH-ROCHE-1153430

PATIENT
  Age: 44 Year
  Sex: Male
  Weight: 70 kg

DRUGS (16)
  1. PEG-INTERFERON ALFA 2A [Suspect]
     Indication: CHRONIC HEPATITIS C
     Dosage: 25,7143 MCG
     Route: 058
     Dates: start: 20111012, end: 20120905
  2. RIBAVIRIN [Suspect]
     Indication: CHRONIC HEPATITIS C
     Route: 048
     Dates: start: 20111012, end: 20120910
  3. BLINDED BI 201335 [Suspect]
     Indication: CHRONIC HEPATITIS C
     Route: 048
     Dates: start: 20111012, end: 20120325
  4. MOVICOL [Concomitant]
     Indication: PAIN
     Dosage: 1 SACHET DAILY
     Route: 048
     Dates: end: 20120903
  5. MOVICOL [Concomitant]
     Indication: CONSTIPATION
  6. PANTOPRAZOLE [Concomitant]
     Indication: PAIN
     Route: 048
  7. CITALOPRAM [Concomitant]
     Indication: POST-TRAUMATIC STRESS DISORDER
     Route: 048
  8. NOVALGIN [Concomitant]
     Dosage: 160 DROPS
     Route: 048
  9. REMERON [Concomitant]
     Indication: POST-TRAUMATIC STRESS DISORDER
     Route: 048
  10. TRUXAL [Concomitant]
     Indication: POST-TRAUMATIC STRESS DISORDER
     Route: 048
     Dates: end: 20120601
  11. ZOLPIDEM [Concomitant]
     Indication: POST-TRAUMATIC STRESS DISORDER
     Route: 048
     Dates: start: 20111012, end: 20120903
  12. DAFALGAN [Concomitant]
     Indication: HEADACHE
     Route: 048
     Dates: start: 20111012
  13. CHLORHEXAMED [Concomitant]
     Route: 048
     Dates: start: 20111026, end: 20120401
  14. IMOVANE [Concomitant]
     Indication: POST-TRAUMATIC STRESS DISORDER
     Route: 048
     Dates: end: 20121012
  15. VI-DE 3 [Concomitant]
     Route: 048
  16. TRAMADOL HYDROCHLORIDE [Concomitant]
     Indication: POST-TRAUMATIC STRESS DISORDER
     Route: 065

REACTIONS (1)
  - Syncope [Recovered/Resolved]
